FAERS Safety Report 7421292-0 (Version None)
Quarter: 2011Q2

REPORT INFORMATION
  Report Type: 
  Country: None (occurrence: None)
  Receive Date: 20110418
  Receipt Date: 20110408
  Transmission Date: 20111010
  Serious: Yes (Hospitalization)
  Sender: FDA-Public Use
  Company Number: JP-MERCK-1103USA03532

PATIENT
  Age: 73 Year
  Sex: Female
  Weight: 55 kg

DRUGS (7)
  1. GLYBURIDE [Concomitant]
     Indication: DIABETES MELLITUS
     Route: 048
  2. JANUVIA [Suspect]
     Indication: DIABETES MELLITUS
     Route: 048
     Dates: start: 20110309, end: 20110310
  3. EVISTA [Concomitant]
     Indication: OSTEOPOROSIS
     Route: 048
  4. ERSIBON [Concomitant]
     Indication: OSTEOPOROSIS
     Route: 048
  5. FAMOTIDINE [Concomitant]
     Route: 048
  6. NOVORAPID [Concomitant]
     Route: 058
     Dates: end: 20110309
  7. ASPARA CA [Concomitant]
     Indication: OSTEOPOROSIS
     Route: 048

REACTIONS (1)
  - DIABETIC KETOACIDOSIS [None]
